FAERS Safety Report 21207981 (Version 2)
Quarter: 2022Q3

REPORT INFORMATION
  Report Type: Spontaneous
  Country: US (occurrence: US)
  Receive Date: 20220812
  Receipt Date: 20220913
  Transmission Date: 20221026
  Serious: No
  Sender: FDA-Public Use
  Company Number: US-PFIZER INC-PV202200041264

PATIENT
  Age: 76 Year
  Sex: Female

DRUGS (1)
  1. INLYTA [Suspect]
     Active Substance: AXITINIB
     Dosage: UNK

REACTIONS (5)
  - Headache [Unknown]
  - Fatigue [Unknown]
  - Chest discomfort [Unknown]
  - Back pain [Unknown]
  - Dysphonia [Unknown]
